FAERS Safety Report 9275816 (Version 1)
Quarter: 2013Q2

REPORT INFORMATION
  Report Type: Spontaneous
  Country: US (occurrence: US)
  Receive Date: 20130507
  Receipt Date: 20130507
  Transmission Date: 20140414
  Serious: No
  Sender: FDA-Public Use
  Company Number: US-PFIZER INC-2013138549

PATIENT
  Age: 49 Year
  Sex: Male
  Weight: 83.9 kg

DRUGS (3)
  1. GEODON [Suspect]
     Indication: BIPOLAR DISORDER
     Dosage: 80 MG, 2X/DAY
     Dates: end: 201304
  2. VENLAFAXINE [Concomitant]
     Indication: DEPRESSION
     Dosage: UNK
  3. CLONAZEPAM [Concomitant]
     Indication: DEPRESSION
     Dosage: 1 MG DAILY

REACTIONS (4)
  - Withdrawal syndrome [Recovered/Resolved]
  - Tremor [Recovered/Resolved]
  - Feeling abnormal [Recovered/Resolved]
  - Headache [Recovered/Resolved]
